FAERS Safety Report 5919597-5 (Version None)
Quarter: 2008Q4

REPORT INFORMATION
  Report Type: 
  Country: None (occurrence: None)
  Receive Date: 20081015
  Receipt Date: 20080509
  Transmission Date: 20090506
  Serious: No
  Sender: FDA-Public Use
  Company Number: US-BRISTOL-MYERS SQUIBB COMPANY-14186407

PATIENT
  Age: 55 Year
  Sex: Female
  Weight: 45 kg

DRUGS (4)
  1. KENALOG-40 [Suspect]
     Indication: FIBROMYALGIA
     Dosage: 1 DOSAGE FORM=40(UNITS NOT SPEC)
     Dates: start: 20070731, end: 20070731
  2. SYNTHROID [Concomitant]
  3. IMITREX [Concomitant]
  4. FIORICET [Concomitant]

REACTIONS (4)
  - ATROPHY [None]
  - ECCHYMOSIS [None]
  - PAIN [None]
  - RASH ERYTHEMATOUS [None]
